FAERS Safety Report 18874285 (Version 1)
Quarter: 2021Q1

REPORT INFORMATION
  Report Type: Spontaneous
  Country: US (occurrence: US)
  Receive Date: 20210210
  Receipt Date: 20210210
  Transmission Date: 20210420
  Serious: No
  Sender: FDA-Public Use
  Company Number: US-SA-2021SA040801

PATIENT
  Age: 36 Year
  Sex: Male

DRUGS (5)
  1. POVIDONE [Concomitant]
     Active Substance: POVIDONE
  2. AFRIN [OXYMETAZOLINE] [Concomitant]
  3. PREDNISONE. [Concomitant]
     Active Substance: PREDNISONE
  4. MUPIROCIN. [Concomitant]
     Active Substance: MUPIROCIN
  5. DUPIXENT [Suspect]
     Active Substance: DUPILUMAB
     Indication: NASAL POLYPS
     Dosage: 300 MG, QOW
     Route: 058

REACTIONS (1)
  - Injection site rash [Unknown]
